FAERS Safety Report 4603996-8 (Version None)
Quarter: 2005Q1

REPORT INFORMATION
  Report Type: 
  Country: None (occurrence: None)
  Receive Date: 20050308
  Receipt Date: 20050217
  Transmission Date: 20050727
  Serious: Yes (Other)
  Sender: FDA-Public Use
  Company Number: ENTC2005-0053

PATIENT
  Age: 53 Year
  Sex: Male

DRUGS (1)
  1. STALEVO 100 [Suspect]
     Indication: PARKINSON'S DISEASE
     Dosage: 0,5 TABLET
     Route: 048
     Dates: start: 20050115, end: 20050117

REACTIONS (2)
  - DEHYDRATION [None]
  - FAECAL INCONTINENCE [None]
